FAERS Safety Report 18744460 (Version 1)
Quarter: 2021Q1

REPORT INFORMATION
  Report Type: Spontaneous
  Country: US (occurrence: US)
  Receive Date: 20210115
  Receipt Date: 20210115
  Transmission Date: 20210419
  Serious: No
  Sender: FDA-Public Use
  Company Number: US-BIOVITRUM-2021US0387

PATIENT
  Sex: Male
  Weight: 5.3 kg

DRUGS (2)
  1. SYNAGIS [Suspect]
     Active Substance: PALIVIZUMAB
     Indication: ANTIVIRAL PROPHYLAXIS
     Route: 030
     Dates: start: 202012
  2. PROBIOTICS [Concomitant]
     Active Substance: PROBIOTICS NOS

REACTIONS (1)
  - Rash [Unknown]
